FAERS Safety Report 20262836 (Version 3)
Quarter: 2022Q1

REPORT INFORMATION
  Report Type: Spontaneous
  Country: US (occurrence: US)
  Receive Date: 20211231
  Receipt Date: 20220112
  Transmission Date: 20220424
  Serious: Yes (Hospitalization)
  Sender: FDA-Public Use
  Company Number: US-BIOVITRUM-2021US12949

PATIENT
  Sex: Female

DRUGS (3)
  1. SYNAGIS [Suspect]
     Active Substance: PALIVIZUMAB
     Indication: Trisomy 21
     Route: 030
     Dates: start: 20211029
  2. SYNAGIS [Suspect]
     Active Substance: PALIVIZUMAB
     Indication: Thyroid function test abnormal
  3. SYNAGIS [Suspect]
     Active Substance: PALIVIZUMAB
     Indication: Hyperemesis gravidarum

REACTIONS (1)
  - SARS-CoV-2 test positive [Unknown]
